FAERS Safety Report 6585640-6 (Version None)
Quarter: 2010Q1

REPORT INFORMATION
  Report Type: 
  Country: None (occurrence: None)
  Receive Date: 20100217
  Receipt Date: 20100203
  Transmission Date: 20100710
  Serious: Yes (Other)
  Sender: FDA-Public Use
  Company Number: PT-GILEAD-2010-0026466

PATIENT
  Sex: Male

DRUGS (3)
  1. VIREAD [Suspect]
     Indication: HEPATITIS B
     Route: 048
     Dates: start: 20091112, end: 20091201
  2. HEPSERA [Suspect]
     Indication: HEPATITIS B
     Dates: start: 20070322, end: 20091112
  3. HEPSERA [Suspect]
     Dates: start: 20091124

REACTIONS (5)
  - MIGRAINE [None]
  - PAIN [None]
  - PYREXIA [None]
  - VOMITING [None]
  - WEIGHT DECREASED [None]
